FAERS Safety Report 5645183-0 (Version None)
Quarter: 2008Q1

REPORT INFORMATION
  Report Type: 
  Country: None (occurrence: None)
  Receive Date: 20080229
  Receipt Date: 20080219
  Transmission Date: 20080703
  Serious: Yes (Hospitalization)
  Sender: FDA-Public Use
  Company Number: US-JNJFOC-20080204986

PATIENT
  Sex: Female
  Weight: 66.68 kg

DRUGS (17)
  1. FENTANYL TRANSDERMAL SYSTEM [Suspect]
     Route: 062
  2. FENTANYL TRANSDERMAL SYSTEM [Suspect]
     Route: 062
  3. FENTANYL TRANSDERMAL SYSTEM [Suspect]
     Indication: PAIN
     Route: 062
  4. PREDNISONE TAB [Suspect]
     Indication: PAIN
     Route: 048
  5. ALLOPURINOL [Concomitant]
     Indication: GOUT
     Route: 048
  6. REGLAN [Concomitant]
     Route: 048
  7. OS-CAL [Concomitant]
     Indication: OSTEOPOROSIS
     Route: 048
  8. VASOTEC [Concomitant]
     Route: 048
  9. DARVOCET [Concomitant]
     Indication: PAIN
     Route: 048
  10. NEXIUM [Concomitant]
     Route: 048
  11. LEXAPRO [Concomitant]
     Indication: DEPRESSION
     Route: 048
  12. LASIX [Concomitant]
     Route: 048
  13. CEPHALEXIN [Concomitant]
     Indication: INGROWING NAIL
     Route: 048
  14. METOPROLOL TARTRATE [Concomitant]
     Route: 048
  15. LIPITOR [Concomitant]
     Indication: BLOOD CHOLESTEROL INCREASED
     Route: 048
  16. COLCHICINE [Concomitant]
     Indication: GOUT
     Route: 048
  17. ASPIRIN [Concomitant]
     Route: 048

REACTIONS (3)
  - DIZZINESS [None]
  - FALL [None]
  - STRESS FRACTURE [None]
